FAERS Safety Report 4964025-X (Version None)
Quarter: 2006Q1

REPORT INFORMATION
  Report Type: 
  Country: None (occurrence: None)
  Receive Date: 20060330
  Receipt Date: 20060317
  Transmission Date: 20060701
  Serious: Yes (Disabling)
  Sender: FDA-Public Use
  Company Number: EM2006-0147

PATIENT
  Age: 15 Year
  Sex: Male

DRUGS (8)
  1. TOBI [Suspect]
     Indication: PSEUDOMONAS INFECTION
     Dosage: 80 MG INHALATION
     Route: 055
  2. TOBRAMYCIN [Suspect]
     Indication: PSEUDOMONAS INFECTION
     Dosage: 215 MG, IV
     Route: 042
  3. CEFTAZIDIME [Concomitant]
  4. AMPHOTERICIN B [Concomitant]
  5. PULMOZYME [Concomitant]
  6. VANCOMYCIN [Concomitant]
  7. FUROSEMIDE [Concomitant]
  8. TACROLIMUS [Concomitant]

REACTIONS (10)
  - DEAFNESS NEUROSENSORY [None]
  - DISEASE RECURRENCE [None]
  - DRUG CLEARANCE DECREASED [None]
  - INFECTION [None]
  - INJURY [None]
  - MALNUTRITION [None]
  - POST PROCEDURAL COMPLICATION [None]
  - PULMONARY HAEMORRHAGE [None]
  - PURULENCE [None]
  - RENAL FAILURE [None]
